FAERS Safety Report 4549148-1 (Version None)
Quarter: 2004Q4

REPORT INFORMATION
  Report Type: 
  Country: None (occurrence: None)
  Receive Date: 20041227
  Receipt Date: 20041123
  Transmission Date: 20050328
  Serious: No
  Sender: FDA-Public Use
  Company Number: 04P-163-0280313-00

PATIENT
  Sex: Female

DRUGS (1)
  1. HUMIRA [Suspect]
     Indication: WAGNER'S DISEASE
     Dosage: 40 MG, 1 IN 2 WK, SUBCUTANEOUS
     Route: 058
     Dates: start: 20040801, end: 20040801

REACTIONS (9)
  - ALOPECIA [None]
  - BLOOD PRESSURE INCREASED [None]
  - COUGH [None]
  - DYSPNOEA EXACERBATED [None]
  - INCREASED TENDENCY TO BRUISE [None]
  - ORAL SOFT TISSUE DISORDER [None]
  - PALPITATIONS [None]
  - RASH [None]
  - WOUND HAEMORRHAGE [None]
